FAERS Safety Report 7825166-2 (Version None)
Quarter: 2011Q4

REPORT INFORMATION
  Report Type: 
  Country: None (occurrence: None)
  Receive Date: 20111019
  Receipt Date: 20111017
  Transmission Date: 20120403
  Serious: No
  Sender: FDA-Public Use
  Company Number: US-B.I. PHARMACEUTICALS,INC./RIDGEFIELD-2011-BP-22961BP

PATIENT
  Age: 78 Year
  Sex: Male
  Weight: 81.6 kg

DRUGS (6)
  1. PRADAXA [Suspect]
     Indication: ATRIAL FIBRILLATION
     Dosage: 300 MG
     Route: 048
     Dates: start: 20110502
  2. DILTIAZEM HCL [Concomitant]
     Dosage: 180 MG
     Dates: start: 20040303
  3. NITROSTAT [Concomitant]
     Dosage: 0.4 MG
     Dates: start: 20040303
  4. LEXAPRO [Concomitant]
     Dosage: 20 MG
     Dates: start: 20050621
  5. SIMVASTATIN [Concomitant]
     Dosage: 20 MG
     Dates: start: 20080423
  6. ASPIRIN [Concomitant]
     Dosage: 325 MG
     Dates: start: 20040303

REACTIONS (2)
  - AGGRESSION [None]
  - LIBIDO INCREASED [None]
